FAERS Safety Report 24795898 (Version 2)
Quarter: 2025Q1

REPORT INFORMATION
  Report Type: Spontaneous
  Country: JP (occurrence: JP)
  Receive Date: 20250101
  Receipt Date: 20250129
  Transmission Date: 20250408
  Serious: Yes (Hospitalization, Other)
  Sender: ROCHE
  Company Number: JP-CHUGAI-2024010521

PATIENT
  Age: 8 Decade
  Sex: Male
  Weight: 55.2 kg

DRUGS (1)
  1. TECENTRIQ [Suspect]
     Active Substance: ATEZOLIZUMAB
     Indication: Non-small cell lung cancer
     Route: 040
     Dates: end: 20240229

REACTIONS (5)
  - Interstitial lung disease [Recovering/Resolving]
  - Cytokine release syndrome [Recovered/Resolved]
  - Diarrhoea [Recovering/Resolving]
  - Cough [Recovering/Resolving]
  - Decreased appetite [Recovered/Resolved]

NARRATIVE: CASE EVENT DATE: 20240101
